FAERS Safety Report 7468543-4 (Version None)
Quarter: 2011Q2

REPORT INFORMATION
  Report Type: 
  Country: None (occurrence: None)
  Receive Date: 20110509
  Receipt Date: 20110428
  Transmission Date: 20111010
  Serious: Yes (Disabling)
  Sender: FDA-Public Use
  Company Number: US-BAYER-2011-036816

PATIENT
  Age: 82 Year
  Sex: Male

DRUGS (5)
  1. METOPROLOL TARTRATE [Concomitant]
  2. LOPID [Concomitant]
  3. XANAX [Concomitant]
  4. CIPRO [Suspect]
     Indication: PNEUMONIA
     Dosage: 500 MG, BID
     Route: 048
     Dates: start: 20100201, end: 20110414
  5. ANTIBIOTICS [Concomitant]
     Indication: PNEUMONIA

REACTIONS (2)
  - TENDON RUPTURE [None]
  - UPPER EXTREMITY MASS [None]
